FAERS Safety Report 19260012 (Version 1)
Quarter: 2021Q2

REPORT INFORMATION
  Report Type: Report from Study
  Country: US (occurrence: US)
  Receive Date: 20210514
  Receipt Date: 20210514
  Transmission Date: 20210717
  Serious: Yes (Life-Threatening, Hospitalization)
  Sender: FDA-Public Use
  Company Number: US-GLAXOSMITHKLINE-US2021GSK102432

PATIENT

DRUGS (4)
  1. NIRAPARIB [Suspect]
     Active Substance: NIRAPARIB
     Indication: NEUROENDOCRINE CARCINOMA
  2. DOSTARLIMAB [Suspect]
     Active Substance: DOSTARLIMAB
     Indication: SMALL CELL LUNG CANCER
  3. DOSTARLIMAB [Suspect]
     Active Substance: DOSTARLIMAB
     Indication: NEUROENDOCRINE CARCINOMA
  4. NIRAPARIB [Suspect]
     Active Substance: NIRAPARIB
     Indication: SMALL CELL LUNG CANCER

REACTIONS (2)
  - Platelet count decreased [Recovered/Resolved]
  - Supraventricular tachycardia [Recovered/Resolved]

NARRATIVE: CASE EVENT DATE: 20210309
